FAERS Safety Report 9837445 (Version 1)
Quarter: 2013Q4

REPORT INFORMATION
  Report Type: Spontaneous
  Country: US (occurrence: None)
  Receive Date: 20131205
  Receipt Date: 20131205
  Transmission Date: 20140711
  Serious: Yes (Other)
  Sender: FDA-Public Use
  Company Number: 163-POMAL-13092459

PATIENT
  Age: 71 Year
  Sex: Male
  Weight: 86.86 kg

DRUGS (15)
  1. POMALYST (POMALIDOMIDE) (4 MILLIGRAM, CAPSULES) [Suspect]
     Indication: PLASMA CELL MYELOMA
     Dosage: 4 MG, 21 IN 28 D, PO
     Route: 048
     Dates: start: 201305, end: 20130819
  2. TESTOSTERONE (TESTOSTERONE) [Concomitant]
  3. ASPIRIN (ACETYLSALICYLIC ACID) [Concomitant]
  4. LORATADINE (LORATADINE) (LORATADINE) [Concomitant]
  5. COENZYME Q 10 (UBIDECARENONE) [Concomitant]
  6. FERROUS SULFATE (FERROUS SULFATE) [Concomitant]
  7. IBUPROFEN (IBUPROFEN) [Concomitant]
  8. ESOMEPRAZOLE (ESOMEPRAZOLE) [Concomitant]
  9. OMEGA 3 (FISH OIL) [Concomitant]
  10. FAMOTIDINE AC (FAMOTIDINE) [Concomitant]
  11. CALCIUM CITRATE (CALCIUM CITRATE) [Concomitant]
  12. RIVAROXABAN (RIVAROXABAN) [Concomitant]
  13. TADALAFIL (TADALAFIL) [Concomitant]
  14. VITAMIN B12 (CYANOCOBALAMIN) [Concomitant]
  15. DEXAMETHASONE (DEXAMETHASONE) [Concomitant]

REACTIONS (6)
  - Amnesia [None]
  - Night sweats [None]
  - Rash [None]
  - Fatigue [None]
  - Muscle spasms [None]
  - Dizziness [None]
